FAERS Safety Report 25953303 (Version 1)
Quarter: 2025Q4

REPORT INFORMATION
  Report Type: Report from Study
  Country: US (occurrence: US)
  Receive Date: 20251023
  Receipt Date: 20251023
  Transmission Date: 20260118
  Serious: No
  Sender: MALLINCKRODT
  Company Number: US-MALLINCKRODT-MNK202502165

PATIENT
  Sex: Male

DRUGS (2)
  1. CORTICOTROPIN [Suspect]
     Active Substance: CORTICOTROPIN
     Indication: Focal segmental glomerulosclerosis
     Dosage: 80 UNITS
     Route: 058
     Dates: start: 20250327
  2. CORTICOTROPIN [Suspect]
     Active Substance: CORTICOTROPIN
     Indication: Focal segmental glomerulosclerosis

REACTIONS (1)
  - Therapeutic product effect incomplete [Unknown]
